FAERS Safety Report 11847672 (Version 1)
Quarter: 2015Q4

REPORT INFORMATION
  Report Type: Spontaneous
  Country: DK (occurrence: CH)
  Receive Date: 20151217
  Receipt Date: 20151217
  Transmission Date: 20160305
  Serious: Yes (Other)
  Sender: FDA-Public Use
  Company Number: CH-FRI-1000081605

PATIENT
  Sex: Female
  Weight: 2.22 kg

DRUGS (4)
  1. ESCITALOPRAM [Suspect]
     Active Substance: ESCITALOPRAM OXALATE
     Indication: BIPOLAR DISORDER
     Dosage: 10 MG
     Route: 064
     Dates: start: 2012, end: 201508
  2. TEGRETOL [Suspect]
     Active Substance: CARBAMAZEPINE
     Indication: BIPOLAR DISORDER
     Dosage: UNKNOWN
     Route: 064
     Dates: start: 2012, end: 20150310
  3. ZYPREXA [Suspect]
     Active Substance: OLANZAPINE
     Indication: BIPOLAR DISORDER
     Dosage: 10 MG
     Route: 064
     Dates: start: 20150310
  4. ZYPREXA [Suspect]
     Active Substance: OLANZAPINE
     Dosage: 2.5 MG
     Route: 064
     Dates: start: 20150310

REACTIONS (5)
  - Hypoglycaemia neonatal [Recovered/Resolved]
  - Petechiae [Unknown]
  - Foetal exposure during pregnancy [Unknown]
  - False positive investigation result [Recovered/Resolved]
  - Foetal growth restriction [Recovered/Resolved]

NARRATIVE: CASE EVENT DATE: 2015
